FAERS Safety Report 15548901 (Version 1)
Quarter: 2018Q4

REPORT INFORMATION
  Report Type: Spontaneous
  Country: DK (occurrence: DK)
  Receive Date: 20181025
  Receipt Date: 20181025
  Transmission Date: 20190205
  Serious: Yes (Hospitalization)
  Sender: FDA-Public Use
  Company Number: DK-ROCHE-2204316

PATIENT
  Age: 69 Year
  Sex: Female

DRUGS (4)
  1. PROLIA [Concomitant]
     Active Substance: DENOSUMAB
     Indication: OSTEOPOROSIS
     Dosage: STRENGTH: 60 MG/ML
     Route: 065
     Dates: start: 20180301
  2. ROACTEMRA [Suspect]
     Active Substance: TOCILIZUMAB
     Indication: RHEUMATOID ARTHRITIS
     Route: 058
     Dates: start: 20180828, end: 20180924
  3. IBUPROFEN. [Concomitant]
     Active Substance: IBUPROFEN
     Indication: PAIN
     Route: 048
     Dates: start: 20180716
  4. PREDNISOLONE. [Concomitant]
     Active Substance: PREDNISOLONE
     Indication: ADRENOCORTICAL STEROID THERAPY
     Route: 048
     Dates: start: 20170607

REACTIONS (5)
  - Diverticular perforation [Unknown]
  - Diverticulitis [Unknown]
  - Abdominal pain [Unknown]
  - Constipation [Unknown]
  - Flatulence [Unknown]

NARRATIVE: CASE EVENT DATE: 201809
